FAERS Safety Report 8009059-6 (Version None)
Quarter: 2011Q4

REPORT INFORMATION
  Report Type: 
  Country: None (occurrence: None)
  Receive Date: 20111227
  Receipt Date: 20111216
  Transmission Date: 20120403
  Serious: Yes (Hospitalization)
  Sender: FDA-Public Use
  Company Number: JP-ASTRAZENECA-2011SE77716

PATIENT
  Age: 85 Year
  Sex: Male

DRUGS (11)
  1. PURSENNID [Concomitant]
  2. RABEPRAZOLE SODIUM [Concomitant]
  3. VEEN-F [Concomitant]
  4. MAGMITT [Concomitant]
  5. CEREKINON [Concomitant]
  6. URSO 250 [Concomitant]
  7. LASIX [Concomitant]
  8. ALLOPURINOL [Concomitant]
  9. PHYSIO 35 [Concomitant]
  10. MEROPENEM [Suspect]
     Indication: PYELONEPHRITIS ACUTE
     Route: 042
     Dates: start: 20111019, end: 20111023
  11. TPN ELECTROLYTES IN PLASTIC CONTAINER [Concomitant]

REACTIONS (1)
  - DRUG ERUPTION [None]
